FAERS Safety Report 17077245 (Version 2)
Quarter: 2020Q3

REPORT INFORMATION
  Report Type: Spontaneous
  Country: US (occurrence: US)
  Receive Date: 20191126
  Receipt Date: 20200708
  Transmission Date: 20201102
  Serious: No
  Sender: FDA-Public Use
  Company Number: US-AMGEN-USASP2019194767

PATIENT
  Age: 85 Year
  Sex: Female
  Weight: 59 kg

DRUGS (1)
  1. ENBREL [Suspect]
     Active Substance: ETANERCEPT
     Indication: RHEUMATOID ARTHRITIS
     Dosage: 50 MG, WEEKLY (ONE A WEEK FOUR TIMES A MONTH)
     Route: 065
     Dates: start: 2000, end: 201910

REACTIONS (1)
  - Therapeutic product effect decreased [Unknown]
